FAERS Safety Report 9639997 (Version 2)
Quarter: 2013Q4

REPORT INFORMATION
  Report Type: Report from Study
  Country: KR (occurrence: KR)
  Receive Date: 20131023
  Receipt Date: 20131023
  Transmission Date: 20140711
  Serious: Yes (Hospitalization)
  Sender: FDA-Public Use
  Company Number: PHHO2013KR012017

PATIENT
  Sex: 0

DRUGS (8)
  1. BLINDED AFINITOR [Suspect]
     Indication: HEPATOCELLULAR CARCINOMA
     Dosage: CODE NOT BROKEN
     Route: 048
     Dates: start: 20130826, end: 20130916
  2. BLINDED NO TREATMENT RECEIVED [Suspect]
     Indication: HEPATOCELLULAR CARCINOMA
     Dosage: CODE NOT BROKEN
     Route: 048
     Dates: start: 20130826, end: 20130916
  3. BLINDED PLACEBO [Suspect]
     Indication: HEPATOCELLULAR CARCINOMA
     Dosage: CODE NOT BROKEN
     Route: 048
     Dates: start: 20130826, end: 20130916
  4. BLINDED AFINITOR [Suspect]
     Dosage: CODE NOT BROKEN
     Route: 048
     Dates: start: 20130923
  5. BLINDED NO TREATMENT RECEIVED [Suspect]
     Dosage: CODE NOT BROKEN
     Route: 048
     Dates: start: 20130923
  6. BLINDED PLACEBO [Suspect]
     Dosage: CODE NOT BROKEN
     Route: 048
     Dates: start: 20130923
  7. ARONAMIN C PLUS [Concomitant]
     Indication: PROPHYLAXIS
     Dosage: 1 DF, QD
     Route: 048
     Dates: start: 20130903
  8. VIREAD [Concomitant]
     Indication: HEPATITIS B
     Dosage: 300 MG, QD
     Route: 048
     Dates: start: 20130816

REACTIONS (1)
  - Liver abscess [Not Recovered/Not Resolved]
